FAERS Safety Report 9814712 (Version 2)
Quarter: 2014Q1

REPORT INFORMATION
  Report Type: Spontaneous
  Country: US (occurrence: US)
  Receive Date: 20140113
  Receipt Date: 20140113
  Transmission Date: 20141002
  Serious: Yes (Hospitalization)
  Sender: FDA-Public Use
  Company Number: US-SANOFI-AVENTIS-2013SA011445

PATIENT
  Age: 52 Year
  Sex: Female
  Weight: 68.4 kg

DRUGS (33)
  1. DOCETAXEL [Suspect]
     Indication: BREAST CANCER
     Dosage: 102MG
     Route: 065
     Dates: start: 20121115
  2. CARBOPLATIN [Suspect]
     Indication: BREAST CANCER
     Dosage: 10 AUC
     Route: 065
     Dates: start: 20121115
  3. BLINDED THERAPY [Concomitant]
     Route: 042
     Dates: start: 20121115
  4. VITAMIN C [Concomitant]
     Dates: start: 20120910
  5. VITAMIN D3 [Concomitant]
     Dates: start: 20120910
  6. VITAMIN E [Concomitant]
     Dates: start: 20120910
  7. EFFEXOR [Concomitant]
     Dates: start: 20121101
  8. HYDROCODONE BITARTRATE/IBUPROFEN [Concomitant]
     Dosage: DOSE: 5-500MG
     Dates: start: 20121101
  9. HYDROCODONE BITARTRATE/IBUPROFEN [Concomitant]
     Dosage: DOSE: 7.5-200 MG
     Dates: start: 20121101
  10. EMLA [Concomitant]
     Route: 061
     Dates: start: 20121109
  11. PROCHLORPERAZINE [Concomitant]
     Dates: start: 20121115
  12. ZOFRAN [Concomitant]
     Dates: start: 20121109
  13. XANAX [Concomitant]
     Dates: start: 20121101
  14. CIPROFLOXACIN [Concomitant]
     Dates: start: 20121116, end: 20121120
  15. DEXAMETHASONE [Concomitant]
     Dates: start: 20121114, end: 20121116
  16. PROTONIX [Concomitant]
  17. CEFTRIAXONE [Concomitant]
     Dosage: STRENGTH: 1 G/ 50 ML, ROUTE: PIGGYBACK
     Dates: start: 20121127, end: 20121129
  18. HEPARIN [Concomitant]
     Dosage: STRENGTH: 500 MC/5 ML
     Route: 042
     Dates: start: 20121129
  19. PANTOPRAZOLE [Concomitant]
     Dosage: STRENGTH: 40 MG/ 10 ML
     Route: 042
     Dates: start: 20121127, end: 20121128
  20. PANTOPRAZOLE [Concomitant]
     Dosage: STRENGTH: 40 MG/ 10 ML
     Route: 048
     Dates: start: 20121127, end: 20121129
  21. POTASSIUM CHLORIDE [Concomitant]
     Dosage: STRENGTH: 50 ML 10 MEQ WITH 50 ML WATER
     Route: 042
     Dates: start: 20121127
  22. SODIUM CHLORIDE [Concomitant]
     Dosage: STRENGTH: 0.9 %
     Route: 042
     Dates: start: 20121128
  23. ACETAMINOPHEN [Concomitant]
     Dosage: FREQUENCY: 2 IN 4 HOUR
     Route: 048
     Dates: start: 20121126
  24. ACETAMINOPHEN [Concomitant]
     Dosage: FREQUENCY: 2 IN 4 HOUR
     Route: 048
     Dates: start: 20121126
  25. ACETAMINOPHEN W/HYDROCODONE [Concomitant]
     Indication: PAIN
     Dosage: STRENGTH: 500/ 5 MG
     Dates: start: 20121126
  26. BISACODYL [Concomitant]
     Dates: start: 20121126
  27. LIDOCAINE HYDROCHLORIDE/NYSTATIN/TRIAMCINOLONE ACETONIDE [Concomitant]
     Dosage: STRENGTH: 240/ 5ML
     Dates: start: 20121126
  28. MORPHINE [Concomitant]
     Dosage: STRENGTH: 4MG/ 1ML
     Route: 042
     Dates: start: 20121126
  29. ZOFRAN [Concomitant]
     Dosage: STRENGTH: 4 ML 8 MG
     Dates: start: 20121126
  30. DEXTROSE [Concomitant]
     Indication: NAUSEA
     Dosage: STRENGTH: 5% IN WATER
     Route: 042
     Dates: start: 20121126
  31. PROCHLORPERAZINE [Concomitant]
     Route: 048
     Dates: start: 20121126
  32. TEMAZEPAM [Concomitant]
     Indication: INSOMNIA
     Route: 048
  33. DEXTROSE MONOHYDRATE/POTASSIUM CHLORIDE/SODIUM CITRATE/SODIUM CHLORIDE [Concomitant]
     Dosage: SRENGTH: 20 MEQ/L
     Dates: start: 20121126, end: 20121128

REACTIONS (1)
  - Febrile neutropenia [Recovering/Resolving]
